FAERS Safety Report 5705223-7 (Version None)
Quarter: 2008Q2

REPORT INFORMATION
  Report Type: 
  Country: None (occurrence: None)
  Receive Date: 20080410
  Receipt Date: 20080404
  Transmission Date: 20081010
  Serious: Yes (Hospitalization)
  Sender: FDA-Public Use
  Company Number: T07-JPN-05519-01

PATIENT
  Age: 88 Year
  Sex: Female
  Weight: 41 kg

DRUGS (5)
  1. MEMANTINE HCL [Suspect]
     Indication: DEMENTIA ALZHEIMER'S TYPE
     Dosage: 20 MG QD PO
     Route: 048
     Dates: start: 20070223, end: 20070906
  2. BROTIZOLAM [Concomitant]
  3. AMLODIPINE BESILATE [Concomitant]
  4. VALSARTAN [Concomitant]
  5. FELBINAC [Concomitant]

REACTIONS (10)
  - BACTERIAL INFECTION [None]
  - BILIARY TRACT DISORDER [None]
  - BILIARY TRACT INFECTION [None]
  - CHOLELITHIASIS [None]
  - DEMENTIA [None]
  - GALLBLADDER ENLARGEMENT [None]
  - HEPATIC CYST [None]
  - INFLAMMATION [None]
  - LIVER ABSCESS [None]
  - RESTLESSNESS [None]
